FAERS Safety Report 15036662 (Version 2)
Quarter: 2018Q3

REPORT INFORMATION
  Report Type: Spontaneous
  Country: JP (occurrence: JP)
  Receive Date: 20180620
  Receipt Date: 20180705
  Transmission Date: 20181010
  Serious: Yes (Death, Disabling, Other)
  Sender: FDA-Public Use
  Company Number: JP-DSJP-DSJ-2018-122954

PATIENT

DRUGS (7)
  1. LIXIANA OD TABLETS 30MG [Suspect]
     Active Substance: EDOXABAN TOSYLATE
     Indication: PULMONARY EMBOLISM
     Dosage: 30 MG, QD
     Route: 048
     Dates: start: 20180517, end: 20180526
  2. CARBOPLATIN. [Concomitant]
     Active Substance: CARBOPLATIN
     Indication: OVARIAN CANCER
     Dosage: 380 MG, QD
     Route: 042
     Dates: start: 20180523, end: 20180523
  3. PACLITAXEL. [Concomitant]
     Active Substance: PACLITAXEL
     Indication: OVARIAN CANCER
     Dosage: 110 MG, QD
     Route: 042
     Dates: start: 20180523, end: 20180523
  4. RISPERIDONE. [Concomitant]
     Active Substance: RISPERIDONE
     Indication: SCHIZOPHRENIA
     Dosage: 1 MG, QD
     Route: 048
  5. PRIMPERAN [Concomitant]
     Active Substance: METOCLOPRAMIDE HYDROCHLORIDE
     Indication: OVARIAN CANCER
     Dosage: 5 MG, QD
     Route: 048
     Dates: start: 20180523, end: 20180526
  6. LIXIANA OD TABLETS 30MG [Suspect]
     Active Substance: EDOXABAN TOSYLATE
     Indication: DEEP VEIN THROMBOSIS
  7. TASMOLIN                           /00079502/ [Concomitant]
     Active Substance: BIPERIDEN HYDROCHLORIDE
     Indication: SCHIZOPHRENIA
     Dosage: 4 MG, UNK
     Route: 048

REACTIONS (10)
  - Ovarian cancer [Fatal]
  - Cardio-respiratory arrest [Fatal]
  - Anaemia of malignant disease [Recovered/Resolved]
  - Malignant neoplasm progression [None]
  - Haematemesis [Unknown]
  - Intra-abdominal haemorrhage [None]
  - Discoloured vomit [None]
  - Ascites [None]
  - Thrombosis [Fatal]
  - Gait inability [None]

NARRATIVE: CASE EVENT DATE: 20180521
